FAERS Safety Report 17598160 (Version 2)
Quarter: 2020Q2

REPORT INFORMATION
  Report Type: Spontaneous
  Country: JP (occurrence: JP)
  Receive Date: 20200330
  Receipt Date: 20200519
  Transmission Date: 20200713
  Serious: Yes (Hospitalization, Other)
  Sender: FDA-Public Use
  Company Number: JP-ELI_LILLY_AND_COMPANY-JP202003012462

PATIENT
  Age: 69 Year
  Sex: Female
  Weight: 36 kg

DRUGS (9)
  1. CYRAMZA [Suspect]
     Active Substance: RAMUCIRUMAB
     Indication: COLON CANCER
     Dosage: 290 MG, CYCLICAL
     Route: 041
     Dates: start: 20200115, end: 20200205
  2. IRINOTECAN [Suspect]
     Active Substance: IRINOTECAN
     Indication: COLON CANCER
     Dosage: 135 MG, CYCLICAL
     Route: 041
     Dates: start: 20200115, end: 20200226
  3. OXALIPLATIN. [Suspect]
     Active Substance: OXALIPLATIN
     Indication: COLON CANCER
     Dosage: UNK
     Route: 041
     Dates: start: 20190912, end: 20191220
  4. HANGESHASHINTO [COPTIS SPP. RHIZOME;GLYCYRRHI [Concomitant]
     Active Substance: HERBALS
     Indication: DIARRHOEA
     Dosage: 3 DOSAGE FORM
     Dates: start: 20200117
  5. LEVOFOLINATE CALCIUM [Suspect]
     Active Substance: LEVOLEUCOVORIN CALCIUM
     Indication: COLON CANCER
     Dosage: 180 MG, CYCLICAL
     Route: 041
     Dates: start: 20190912, end: 20200226
  6. AVASTIN [Suspect]
     Active Substance: BEVACIZUMAB
     Indication: COLON CANCER
     Dosage: UNK
     Route: 041
     Dates: start: 20191106, end: 20191220
  7. FLUOROURACIL. [Suspect]
     Active Substance: FLUOROURACIL
     Indication: COLON CANCER
     Dosage: 365 MG, CYCLICAL
     Route: 042
     Dates: start: 20190912, end: 20200226
  8. FLUOROURACIL. [Suspect]
     Active Substance: FLUOROURACIL
     Dosage: 2019.5 UNK
     Route: 041
     Dates: start: 20190912, end: 20200228
  9. LANSOPRAZOLE. [Concomitant]
     Active Substance: LANSOPRAZOLE
     Indication: GASTROOESOPHAGEAL REFLUX DISEASE
     Dosage: 15 MG
     Route: 048
     Dates: start: 20190815

REACTIONS (3)
  - Oedema peripheral [Unknown]
  - Cardiac failure congestive [Recovered/Resolved with Sequelae]
  - Proteinuria [Recovered/Resolved]

NARRATIVE: CASE EVENT DATE: 202002
